FAERS Safety Report 8218625-4 (Version None)
Quarter: 2012Q1

REPORT INFORMATION
  Report Type: 
  Country: None (occurrence: None)
  Receive Date: 20120319
  Receipt Date: 20120316
  Transmission Date: 20120608
  Serious: Yes (Hospitalization)
  Sender: FDA-Public Use
  Company Number: FR-B.I. PHARMACEUTICALS,INC./RIDGEFIELD-2012-FF-00043FF

PATIENT
  Sex: Female
  Weight: 57.8 kg

DRUGS (3)
  1. PRADAXA [Suspect]
     Indication: HIP ARTHROPLASTY
     Dosage: 150 MG
     Route: 048
     Dates: start: 20111011, end: 20111130
  2. ACETAMINOPHEN [Concomitant]
     Indication: PAIN
     Dosage: 3000 MG
     Route: 048
     Dates: start: 20111011
  3. PRADAXA [Suspect]
     Indication: THROMBOSIS PROPHYLAXIS

REACTIONS (1)
  - DEVICE DISLOCATION [None]
